FAERS Safety Report 5717554-5 (Version None)
Quarter: 2008Q2

REPORT INFORMATION
  Report Type: 
  Country: None (occurrence: None)
  Receive Date: 20080425
  Receipt Date: 20080422
  Transmission Date: 20081010
  Serious: Yes (Other)
  Sender: FDA-Public Use
  Company Number: CA-JNJFOC-20080105614

PATIENT
  Sex: Female
  Weight: 74 kg

DRUGS (5)
  1. RISPERDAL [Suspect]
     Indication: DEPRESSION
  2. CLONAZEPAM [Concomitant]
     Indication: ANXIETY
  3. FLUOXETINE [Concomitant]
     Indication: DEPRESSION
  4. LITHIUM CARBONATE [Concomitant]
  5. ZOPICLONE [Concomitant]
     Indication: SEDATIVE THERAPY

REACTIONS (2)
  - DIABETES MELLITUS [None]
  - HYPERLIPIDAEMIA [None]
